FAERS Safety Report 23143623 (Version 3)
Quarter: 2023Q4

REPORT INFORMATION
  Report Type: Report from Study
  Country: JP (occurrence: JP)
  Receive Date: 20231103
  Receipt Date: 20231201
  Transmission Date: 20240109
  Serious: Yes (Hospitalization)
  Sender: FDA-Public Use
  Company Number: JP-Eisai Medical Research-EC-2023-144277

PATIENT
  Age: 78 Year
  Sex: Male
  Weight: 66.8 kg

DRUGS (22)
  1. LENVATINIB [Suspect]
     Active Substance: LENVATINIB
     Indication: Clear cell renal cell carcinoma
     Dosage: STARTING DOSE AT 20 MG, (FLUCTUATED DOSAGE)
     Route: 048
     Dates: start: 20230525, end: 20230704
  2. LENVATINIB [Suspect]
     Active Substance: LENVATINIB
     Dosage: STARTING DOSE AT 10 MG, (FLUCTUATED DOSAGE)
     Route: 048
     Dates: start: 20230727
  3. QUAVONLIMAB [Suspect]
     Active Substance: QUAVONLIMAB
     Indication: Clear cell renal cell carcinoma
     Dosage: QUAVONLIMAB 25 MG (+) PEMBROLIZUMAB 400 MG
     Route: 041
     Dates: start: 20230525, end: 20230525
  4. GUANABENZ ACETATE [Concomitant]
     Active Substance: GUANABENZ ACETATE
     Dates: start: 202201
  5. REBAMIPIDE [Concomitant]
     Active Substance: REBAMIPIDE
     Dates: start: 202201
  6. EPERISONE HYDROCHLORIDE [Concomitant]
     Active Substance: EPERISONE HYDROCHLORIDE
     Dates: start: 202201
  7. LEVOCETIRIZINE [Concomitant]
     Active Substance: LEVOCETIRIZINE
     Dates: start: 202201
  8. BROMFENAC SODIUM [Concomitant]
     Active Substance: BROMFENAC SODIUM
     Dates: start: 202201
  9. CARTEOLOL HYDROCHLORIDE\LATANOPROST [Concomitant]
     Active Substance: CARTEOLOL HYDROCHLORIDE\LATANOPROST
     Dates: start: 202201
  10. EPINASTINE HYDROCHLORIDE [Concomitant]
     Active Substance: EPINASTINE HYDROCHLORIDE
     Dates: start: 202201
  11. HEPARINOID [Concomitant]
     Dates: start: 20230526
  12. SODIUM GUALENATE [Concomitant]
     Active Substance: SODIUM GUALENATE
     Dates: start: 20230526
  13. BIO-THREE [Concomitant]
     Active Substance: HERBALS
     Dates: start: 20230526
  14. LOXOPROFEN [Concomitant]
     Active Substance: LOXOPROFEN
     Dates: start: 20230607
  15. PREDONINE [Concomitant]
     Active Substance: PREDNISOLONE
     Dates: start: 20230616, end: 20230630
  16. BETAMETHASONE BUTYRATE PROPIONATE [Concomitant]
     Active Substance: BETAMETHASONE BUTYRATE PROPIONATE
     Dates: start: 20230630, end: 20230818
  17. FEBUXOSTAT [Concomitant]
     Active Substance: FEBUXOSTAT
     Dates: start: 202201
  18. AMLODIPINE [Concomitant]
     Active Substance: AMLODIPINE BESYLATE
     Dates: start: 202301
  19. LANSOPRAZOLE [Concomitant]
     Active Substance: LANSOPRAZOLE
     Dates: start: 202201
  20. LOXOPROFEN SODIUM [Concomitant]
     Active Substance: LOXOPROFEN SODIUM
     Dates: start: 202201
  21. LORNOXICAM [Concomitant]
     Active Substance: LORNOXICAM
     Dates: start: 202201
  22. PEMBROLIZUMAB [Suspect]
     Active Substance: PEMBROLIZUMAB

REACTIONS (1)
  - Gait disturbance [Recovering/Resolving]

NARRATIVE: CASE EVENT DATE: 20230707
